FAERS Safety Report 8391218-4 (Version None)
Quarter: 2012Q2

REPORT INFORMATION
  Report Type: 
  Country: None (occurrence: None)
  Receive Date: 20120529
  Receipt Date: 20120508
  Transmission Date: 20120825
  Serious: No
  Sender: FDA-Public Use
  Company Number: JP-JNJFOC-20120506311

PATIENT
  Age: 80 Year
  Sex: Male

DRUGS (4)
  1. UNKNOWN MEDICATION [Concomitant]
     Route: 065
  2. MIRABEGRON [Interacting]
     Indication: MICTURITION URGENCY
     Route: 048
     Dates: start: 20120401
  3. TRAMADOL HYDROCHLORIDE AND ACETAMINOPHEN [Suspect]
     Indication: PAIN
     Dosage: TWICE A DAY ABOUT 3 WEEKS
     Route: 048
     Dates: start: 20120419
  4. MIRABEGRON [Interacting]
     Indication: POLLAKIURIA
     Route: 048
     Dates: start: 20120401

REACTIONS (3)
  - POLLAKIURIA [None]
  - DRUG INTERACTION [None]
  - MICTURITION URGENCY [None]
